FAERS Safety Report 19742848 (Version 1)
Quarter: 2021Q3

REPORT INFORMATION
  Report Type: Spontaneous
  Country: US (occurrence: US)
  Receive Date: 20210824
  Receipt Date: 20210824
  Transmission Date: 20211014
  Serious: No
  Sender: FDA-Public Use
  Company Number: US-GUERBET-US-20210091

PATIENT

DRUGS (1)
  1. CONRAY 30 [Suspect]
     Active Substance: IOTHALAMATE MEGLUMINE
     Indication: PRODUCT USED FOR UNKNOWN INDICATION
     Route: 051

REACTIONS (1)
  - Hypersensitivity [Unknown]
